FAERS Safety Report 13113680 (Version 1)
Quarter: 2017Q1

REPORT INFORMATION
  Report Type: Spontaneous
  Country: NZ (occurrence: NZ)
  Receive Date: 20170113
  Receipt Date: 20170113
  Transmission Date: 20170428
  Serious: Yes (Other)
  Sender: FDA-Public Use
  Company Number: NZ-MYLANLABS-2017M1001459

PATIENT

DRUGS (4)
  1. ALENDRONATE [Suspect]
     Active Substance: ALENDRONATE SODIUM
     Dosage: 70MG FORTNIGHTLY
     Route: 065
  2. TERIPARATIDE [Suspect]
     Active Substance: TERIPARATIDE
     Dosage: THEN REDUCED BACK TO 20MCG EVERY ALTERNATE DAYS
     Route: 058
  3. ALENDRONATE [Suspect]
     Active Substance: ALENDRONATE SODIUM
     Indication: PRODUCT USED FOR UNKNOWN INDICATION
     Dosage: THEN REDUCED TO 70MG FORTNIGHTLY
     Route: 065
  4. TERIPARATIDE [Suspect]
     Active Substance: TERIPARATIDE
     Indication: HYPOPHOSPHATASIA
     Dosage: THEN INCREASED TO 20MCG DAILY
     Route: 058

REACTIONS (6)
  - Multiple fractures [Unknown]
  - Hypophosphatasia [Recovered/Resolved]
  - Osteomalacia [Recovering/Resolving]
  - Nausea [Unknown]
  - Condition aggravated [Recovered/Resolved]
  - Decreased appetite [Unknown]
